FAERS Safety Report 7978435-X (Version None)
Quarter: 2011Q4

REPORT INFORMATION
  Report Type: 
  Country: None (occurrence: None)
  Receive Date: 20111129
  Receipt Date: 20110711
  Transmission Date: 20120403
  Serious: No
  Sender: FDA-Public Use
  Company Number: PHHY2011US61875

PATIENT
  Sex: Female

DRUGS (8)
  1. BUSPAR [Concomitant]
  2. ZINC (ZINC) [Concomitant]
  3. CALCIUM CARBONATE [Concomitant]
  4. LEXAPRO [Concomitant]
  5. MULTIVITAMINS (ASCORBIC ACID, ERGOCALCIFEROL, FOLIC ACID, NICOTINAMIDE [Concomitant]
  6. AFINITOR [Suspect]
     Indication: TUBEROUS SCLEROSIS
     Dosage: 5 MG, DAILY
     Dates: start: 20110704
  7. AFINITOR [Suspect]
     Indication: TUBEROUS SCLEROSIS
     Dosage: 5 MG, DAILY
     Dates: start: 20110613
  8. DIASTAT [Concomitant]

REACTIONS (2)
  - SWELLING [None]
  - ARTHROPOD BITE [None]
